FAERS Safety Report 7078621-X (Version None)
Quarter: 2010Q4

REPORT INFORMATION
  Report Type: 
  Country: None (occurrence: None)
  Receive Date: 20101101
  Receipt Date: 20101101
  Transmission Date: 20110411
  Serious: Yes (Hospitalization)
  Sender: FDA-Public Use
  Company Number: None

PATIENT
  Age: 42 Year
  Sex: Male
  Weight: 68.0396 kg

DRUGS (3)
  1. SEROQUEL [Suspect]
     Indication: PSYCHOTIC DISORDER
     Dosage: 400 MG 200 IN MORNING 200 AT NIGHT 7/19/10 STARTED ON 100 MG 7/24/10 400 MG
     Dates: start: 20100719
  2. SEROQUEL [Suspect]
     Indication: PSYCHOTIC DISORDER
     Dosage: 400 MG 200 IN MORNING 200 AT NIGHT 7/19/10 STARTED ON 100 MG 7/24/10 400 MG
     Dates: start: 20100724
  3. ZYPREXA [Suspect]
     Dosage: 15 MG AT NIGHT

REACTIONS (5)
  - AGITATION [None]
  - HALLUCINATION [None]
  - RESTLESSNESS [None]
  - TARDIVE DYSKINESIA [None]
  - TREMOR [None]
